FAERS Safety Report 12528931 (Version 1)
Quarter: 2016Q3

REPORT INFORMATION
  Report Type: Spontaneous
  Country: US (occurrence: US)
  Receive Date: 20160705
  Receipt Date: 20160705
  Transmission Date: 20161109
  Serious: Yes (Other)
  Sender: FDA-Public Use
  Company Number: PHHY2016US089907

PATIENT
  Age: 39 Year
  Sex: Male

DRUGS (1)
  1. DOXYCYCLINE. [Suspect]
     Active Substance: DOXYCYCLINE
     Indication: LYME DISEASE
     Dosage: UNK
     Route: 065

REACTIONS (5)
  - Thrombocytosis [Unknown]
  - Splenic infarction [Recovered/Resolved]
  - Jarisch-Herxheimer reaction [Unknown]
  - Thrombocytopenia [Unknown]
  - Drug ineffective [Unknown]
